FAERS Safety Report 26011299 (Version 1)
Quarter: 2025Q4

REPORT INFORMATION
  Report Type: Report from Study
  Country: RS (occurrence: RS)
  Receive Date: 20251107
  Receipt Date: 20251107
  Transmission Date: 20260118
  Serious: Yes (Hospitalization, Other)
  Sender: SANOFI AVENTIS
  Company Number: RS-SA-2025SA330464

PATIENT
  Age: 68 Year
  Sex: Male
  Weight: 70 kg

DRUGS (21)
  1. OXALIPLATIN [Suspect]
     Active Substance: OXALIPLATIN
     Indication: Diffuse large B-cell lymphoma
     Dosage: 184 MG
     Route: 042
     Dates: start: 20250225, end: 20250415
  2. OXALIPLATIN [Suspect]
     Active Substance: OXALIPLATIN
     Dosage: 90 MG
     Route: 042
     Dates: start: 20250513
  3. GEMCITABINE [Suspect]
     Active Substance: GEMCITABINE
     Indication: Diffuse large B-cell lymphoma
     Dosage: 1847 MG
     Route: 042
     Dates: start: 20250225, end: 20250415
  4. GEMCITABINE [Suspect]
     Active Substance: GEMCITABINE
     Dosage: 905 MG
     Route: 042
     Dates: start: 20250513
  5. RITUXIMAB [Suspect]
     Active Substance: RITUXIMAB
     Indication: Diffuse large B-cell lymphoma
     Dosage: 693 MG
     Route: 042
     Dates: start: 20250224, end: 20250415
  6. RITUXIMAB [Suspect]
     Active Substance: RITUXIMAB
     Dosage: 680 MG
     Route: 042
     Dates: start: 20250513
  7. EPCORITAMAB [Suspect]
     Active Substance: EPCORITAMAB
     Indication: Diffuse large B-cell lymphoma
     Dosage: UNK
  8. BISOPROLOL [Concomitant]
     Active Substance: BISOPROLOL
     Indication: Hypertension
     Dosage: 5 MG, QD
     Dates: start: 20100504
  9. CORNELIN [Concomitant]
     Indication: Hypertension
     Dosage: 10 MG, QD
     Dates: start: 20100504
  10. VALSARTAN [Concomitant]
     Active Substance: VALSARTAN
     Indication: Hypertension
     Dosage: 80 MG, QD
     Dates: start: 20100504
  11. PANTOPRAZOLE [Concomitant]
     Active Substance: PANTOPRAZOLE
     Indication: Gastrointestinal disorder prophylaxis
     Dosage: 40 MG, QD
     Dates: start: 20100504
  12. PANTOPRAZOLE [Concomitant]
     Active Substance: PANTOPRAZOLE
     Indication: Gastrointestinal disorder prophylaxis
     Dosage: 40 MG, TOTAL
     Dates: start: 20250423, end: 20250423
  13. LORAZEPAM [Concomitant]
     Active Substance: LORAZEPAM
     Indication: Anxiety
     Dosage: 2.5 MG, PRN
     Dates: start: 20090512
  14. LORATADINE [Concomitant]
     Active Substance: LORATADINE
     Indication: Premedication
     Dosage: 5 MG, TOTAL
     Dates: start: 20250325, end: 20250325
  15. LORATADINE [Concomitant]
     Active Substance: LORATADINE
     Indication: Eye swelling
     Dosage: 5 MG, TOTAL
     Dates: start: 20250415, end: 20250415
  16. LORATADINE [Concomitant]
     Active Substance: LORATADINE
     Indication: Ocular hyperaemia
     Dosage: 10 MG, TOTAL
     Dates: start: 20250423, end: 20250423
  17. METHYLPREDNISOLONE [Concomitant]
     Active Substance: METHYLPREDNISOLONE
     Indication: Eye swelling
     Dosage: 40 MG, TOTAL
     Dates: start: 20250423, end: 20250423
  18. METHYLPREDNISOLONE [Concomitant]
     Active Substance: METHYLPREDNISOLONE
     Indication: Ocular hyperaemia
     Dosage: 60 MG, TOTAL
     Dates: start: 20250325, end: 20250325
  19. METHYLPREDNISOLONE [Concomitant]
     Active Substance: METHYLPREDNISOLONE
     Indication: Prophylaxis
     Dosage: 60 MG, TOTAL
     Dates: start: 20250415, end: 20250415
  20. LONGACEPH [Concomitant]
     Indication: Dacryocystitis
     Dosage: 1 G, Q12H
     Dates: start: 20250424
  21. CIPROFLOXACIN [Concomitant]
     Active Substance: CIPROFLOXACIN
     Indication: Dacryocystitis
     Dosage: 1 DROP, Q6H
     Route: 047
     Dates: start: 20250424

REACTIONS (4)
  - Cardiac failure [Recovered/Resolved with Sequelae]
  - Neutropenia [Recovered/Resolved]
  - Anaemia [Recovered/Resolved]
  - Thrombocytopenia [Recovered/Resolved with Sequelae]

NARRATIVE: CASE EVENT DATE: 20250422
